FAERS Safety Report 5737373-3 (Version None)
Quarter: 2008Q2

REPORT INFORMATION
  Report Type: 
  Country: None (occurrence: None)
  Receive Date: 20080514
  Receipt Date: 20080128
  Transmission Date: 20081010
  Serious: Yes (Other)
  Sender: FDA-Public Use
  Company Number: US-BRISTOL-MYERS SQUIBB COMPANY-14035703

PATIENT
  Age: 42 Year
  Sex: Female

DRUGS (9)
  1. IXEMPRA KIT [Suspect]
     Indication: BREAST CANCER METASTATIC
     Dosage: STARTED ON 30-NOV-2007.
     Route: 042
     Dates: start: 20071222, end: 20071222
  2. DECADRON [Concomitant]
     Indication: PREMEDICATION
     Route: 041
     Dates: start: 20071222
  3. PEPCID [Concomitant]
     Indication: PREMEDICATION
     Route: 041
     Dates: start: 20071222
  4. BENADRYL [Concomitant]
     Indication: PREMEDICATION
     Route: 041
     Dates: start: 20071222
  5. AMARYL [Concomitant]
  6. ARIXTRA [Concomitant]
     Route: 058
  7. OXYCONTIN [Concomitant]
     Route: 048
  8. KYTRIL [Concomitant]
     Route: 042
     Dates: start: 20071222
  9. OXYCODONE HCL [Concomitant]
     Route: 048

REACTIONS (2)
  - SYNCOPE [None]
  - TREMOR [None]
